FAERS Safety Report 10255786 (Version 2)
Quarter: 2014Q3

REPORT INFORMATION
  Report Type: Spontaneous
  Country: IT (occurrence: IT)
  Receive Date: 20140624
  Receipt Date: 20140905
  Transmission Date: 20150326
  Serious: Yes (Other)
  Sender: FDA-Public Use
  Company Number: IT-TEVA-489735ISR

PATIENT
  Age: 61 Year
  Sex: Male

DRUGS (5)
  1. DESAMETASONE [Concomitant]
     Active Substance: DEXAMETHASONE
     Indication: PLASMA CELL MYELOMA
     Dosage: 40 MILLIGRAM DAILY;
     Route: 048
     Dates: start: 20140304, end: 20140307
  2. DOXORUBICINA CLORIDRATO [Concomitant]
     Active Substance: DOXORUBICIN
     Indication: PLASMA CELL MYELOMA
     Dosage: 10 MG/M2 DAILY;
     Route: 042
     Dates: start: 20140304, end: 20140307
  3. ENDOXAN BAXTER [Concomitant]
     Active Substance: CYCLOPHOSPHAMIDE
     Indication: PLASMA CELL MYELOMA
     Dosage: 400 MG/M2 DAILY;
     Route: 042
     Dates: start: 20140304, end: 20140307
  4. CISPLATINO TEVA ITALIA [Suspect]
     Active Substance: CISPLATIN
     Indication: PLASMA CELL MYELOMA
     Dosage: 10 MG/M2 DAILY;
     Route: 042
     Dates: start: 20140304, end: 20140307
  5. ETOPOSIDE TEVA [Concomitant]
     Active Substance: ETOPOSIDE
     Indication: PLASMA CELL MYELOMA
     Dosage: 40 MG/M2 DAILY;
     Route: 042
     Dates: start: 20140304, end: 20140307

REACTIONS (4)
  - Toxic neuropathy [Recovering/Resolving]
  - Off label use [Recovering/Resolving]
  - Hyperaesthesia [Recovering/Resolving]
  - Gait disturbance [Recovering/Resolving]

NARRATIVE: CASE EVENT DATE: 20140315
